FAERS Safety Report 5261265-X (Version None)
Quarter: 2007Q1

REPORT INFORMATION
  Report Type: 
  Country: None (occurrence: None)
  Receive Date: 20070309
  Receipt Date: 20070227
  Transmission Date: 20070707
  Serious: Yes (Other)
  Sender: FDA-Public Use
  Company Number: US-PFIZER INC-2007016761

PATIENT
  Sex: Female
  Weight: 60.8 kg

DRUGS (4)
  1. CHANTIX [Suspect]
     Indication: EX-SMOKER
  2. CARDIZEM [Concomitant]
  3. PREVACID [Concomitant]
  4. CLARITIN [Concomitant]

REACTIONS (3)
  - HYPOAESTHESIA [None]
  - PRURITUS [None]
  - RASH [None]
